FAERS Safety Report 8015021-X (Version None)
Quarter: 2011Q4

REPORT INFORMATION
  Report Type: 
  Country: None (occurrence: None)
  Receive Date: 20111230
  Receipt Date: 20111221
  Transmission Date: 20120403
  Serious: No
  Sender: FDA-Public Use
  Company Number: US-BIOGENIDEC-2010BI020862

PATIENT
  Age: 49 Year
  Sex: Female

DRUGS (3)
  1. TYSABRI [Suspect]
     Indication: MULTIPLE SCLEROSIS
     Route: 042
     Dates: start: 20100604
  2. MIRALAX [Concomitant]
     Indication: CONSTIPATION
     Dates: start: 20050101
  3. MISOPROSTOL [Concomitant]
     Indication: CONSTIPATION
     Dates: start: 20050101

REACTIONS (27)
  - ANAL SPHINCTER HYPERTONIA [None]
  - LOWER RESPIRATORY TRACT INFECTION [None]
  - TREMOR [None]
  - MUSCLE SPASTICITY [None]
  - COORDINATION ABNORMAL [None]
  - OEDEMA PERIPHERAL [None]
  - NAIL INFECTION [None]
  - SKIN DISORDER [None]
  - VULVOVAGINAL MYCOTIC INFECTION [None]
  - CHEILITIS [None]
  - FATIGUE [None]
  - PAIN IN EXTREMITY [None]
  - ERYTHEMA [None]
  - FOLLICULITIS [None]
  - ANAL SPHINCTER ATONY [None]
  - FAECAL INCONTINENCE [None]
  - FUNCTIONAL GASTROINTESTINAL DISORDER [None]
  - ARTHRALGIA [None]
  - DRUG INEFFECTIVE [None]
  - FALL [None]
  - IMPAIRED GASTRIC EMPTYING [None]
  - FLUSHING [None]
  - RASH [None]
  - EPISCLERITIS [None]
  - CONSTIPATION [None]
  - EAR PAIN [None]
  - LIGAMENT SPRAIN [None]
